FAERS Safety Report 9941764 (Version 1)
Quarter: 2014Q1

REPORT INFORMATION
  Report Type: Report from Study
  Country: US (occurrence: US)
  Receive Date: 20140303
  Receipt Date: 20140303
  Transmission Date: 20141002
  Serious: No
  Sender: FDA-Public Use
  Company Number: US-ABBVIE-13P-163-1040864-00

PATIENT
  Age: 54 Year
  Sex: Female

DRUGS (24)
  1. HUMIRA [Suspect]
     Indication: RHEUMATOID ARTHRITIS
  2. PLAQUENIL [Concomitant]
     Indication: RHEUMATOID ARTHRITIS
  3. PRILOSEC [Concomitant]
     Indication: PRODUCT USED FOR UNKNOWN INDICATION
     Dosage: 40 MG DAILY
  4. SALOGEN [Concomitant]
     Indication: SJOGREN^S SYNDROME
  5. OXYCONTIN [Concomitant]
     Indication: PAIN
  6. XANAX [Concomitant]
     Indication: ANXIETY
  7. LUNESTA [Concomitant]
     Indication: INSOMNIA
  8. LISINOPRIL [Concomitant]
     Indication: HYPERTENSION
     Dosage: 40 MG DAILY
  9. TRAZADONE [Concomitant]
     Indication: INSOMNIA
     Dosage: 100 MG DAILY
  10. ZOCOR [Concomitant]
     Indication: BLOOD CHOLESTEROL INCREASED
     Dosage: 40 MG DAILY
  11. LASIX [Concomitant]
     Indication: PRODUCT USED FOR UNKNOWN INDICATION
  12. POTASSIUM [Concomitant]
     Indication: SWELLING
  13. RESTASIS [Concomitant]
     Indication: SJOGREN^S SYNDROME
     Dosage: EYE DROPS DAILY
  14. SULINDAC [Concomitant]
     Indication: ARTHRITIS
     Dosage: 50 MG DAILY
  15. ZYRTEC OTC [Concomitant]
     Indication: HYPERSENSITIVITY
  16. SAVELLA [Concomitant]
     Indication: PAIN
  17. DIGOXIN [Concomitant]
     Indication: CARDIOVASCULAR DISORDER
     Dosage: 125 MG DAILY
  18. DIGOXIN [Concomitant]
     Indication: LEFT VENTRICULAR DYSFUNCTION
  19. NITROGLYCERIN [Concomitant]
     Indication: CARDIOVASCULAR DISORDER
  20. OTC WOMEN^S MULTIVITAMIN [Concomitant]
     Indication: PRODUCT USED FOR UNKNOWN INDICATION
  21. SKELAXIN [Concomitant]
     Indication: MUSCLE RELAXANT THERAPY
  22. CHLORZOXAZONE [Concomitant]
     Indication: PRODUCT USED FOR UNKNOWN INDICATION
     Dosage: 500 MG DAILY
  23. ANTIBIOTICS [Concomitant]
     Indication: PRODUCT USED FOR UNKNOWN INDICATION
  24. ASPIRIN [Concomitant]
     Indication: PROPHYLAXIS
     Dosage: 81 MG DAILY

REACTIONS (3)
  - Malaise [Recovering/Resolving]
  - Pain [Recovering/Resolving]
  - Upper respiratory tract irritation [Recovering/Resolving]
